FAERS Safety Report 8392623-2 (Version None)
Quarter: 2012Q2

REPORT INFORMATION
  Report Type: 
  Country: None (occurrence: None)
  Receive Date: 20120529
  Receipt Date: 20120525
  Transmission Date: 20120825
  Serious: Yes (Death, Hospitalization, Other)
  Sender: FDA-Public Use
  Company Number: PHHY2012DE014806

PATIENT
  Sex: Female
  Weight: 90 kg

DRUGS (22)
  1. SIMVASTATIN [Concomitant]
     Dosage: 20 MG, QD
  2. FALITHROM [Concomitant]
     Indication: MESENTERIC VEIN THROMBOSIS
     Route: 048
     Dates: start: 20110515
  3. MOTILIUM [Concomitant]
     Indication: PAIN
     Dosage: 1 DF, TID
     Route: 048
     Dates: start: 20110515
  4. ANGIOTENSIN II ANTAGONISTS [Concomitant]
     Dates: start: 20081217, end: 20090311
  5. LYRICA [Concomitant]
     Indication: PAIN
     Dosage: 1 DF, QD
     Route: 048
     Dates: start: 20100215
  6. BETA BLOCKING AGENTS [Concomitant]
  7. THIENOPYRIDINES [Concomitant]
  8. EXFORGE [Suspect]
     Indication: HYPERTENSION
     Dosage: 1 DF, QD
     Route: 048
     Dates: start: 20080312
  9. CARVEDILOL [Concomitant]
     Indication: HYPERTENSION
     Dosage: 1 DF, BID
     Route: 048
     Dates: start: 20110515
  10. ACE INHIBITORS [Concomitant]
     Dates: start: 20090311, end: 20100429
  11. ASPIRIN [Concomitant]
     Indication: CARDIAC FAILURE
     Dosage: 1 DF, QD
     Route: 048
     Dates: start: 20011024, end: 20110514
  12. VALORON N [Concomitant]
     Indication: PAIN
     Dosage: 1 DF, TID
     Route: 048
     Dates: start: 20100824
  13. NITRATES [Concomitant]
  14. ANTICOAGULANTS [Concomitant]
  15. DIOVAN [Suspect]
     Indication: HYPERTENSION
     Dosage: 80 MG, PER DAY
     Route: 048
     Dates: start: 20100429, end: 20110703
  16. AMLODIPINE BESYLATE [Concomitant]
     Dates: start: 20100429
  17. FUROSEMIDE [Concomitant]
     Dosage: 40 MG, QD
  18. ACTRAPID HUMAN [Concomitant]
     Indication: DIABETES MELLITUS
     Dosage: 8+12+8 IU
     Route: 058
  19. ACTRAPHANE HM [Concomitant]
     Indication: DIABETES MELLITUS
     Dosage: 10 IU, QD
     Route: 058
     Dates: start: 20100114
  20. ANTIDEPRESSANTS [Concomitant]
  21. DIOVAN [Suspect]
     Dosage: 160 MG, 1 DF QD
     Route: 048
     Dates: start: 20110704
  22. INSULIN [Concomitant]
     Indication: DIABETES MELLITUS

REACTIONS (4)
  - PULMONARY OEDEMA [None]
  - PNEUMONIA [None]
  - DEATH [None]
  - BLOOD GLUCOSE INCREASED [None]
